FAERS Safety Report 24044058 (Version 1)
Quarter: 2024Q3

REPORT INFORMATION
  Report Type: Spontaneous
  Country: JP (occurrence: JP)
  Receive Date: 20240703
  Receipt Date: 20240703
  Transmission Date: 20241017
  Serious: Yes (Hospitalization, Other)
  Sender: Vantive US Healthcare
  Company Number: JP-VANTIVE-2024VAN017566

PATIENT
  Sex: Female

DRUGS (2)
  1. EXTRANEAL [Suspect]
     Active Substance: CALCIUM CHLORIDE\ICODEXTRIN\MAGNESIUM CHLORIDE\SODIUM CHLORIDE\SODIUM LACTATE
     Indication: Chronic kidney disease
     Dosage: 1500ML ONCE DAILY
     Route: 033
     Dates: start: 20161102
  2. REGUNEAL LCA [Suspect]
     Active Substance: CALCIUM CHLORIDE\DEXTROSE MONOHYDRATE\HYDROCHLORIC ACID\MAGNESIUM CHLORIDE\SODIUM BICARBONATE\SODIUM
     Indication: Chronic kidney disease
     Dosage: 2000ML ONCE DAILY
     Route: 033
     Dates: start: 20161102

REACTIONS (3)
  - Peritonitis bacterial [Recovered/Resolved]
  - Peritonitis bacterial [Recovered/Resolved]
  - Disease recurrence [Recovered/Resolved]

NARRATIVE: CASE EVENT DATE: 20240522
